FAERS Safety Report 17128930 (Version 1)
Quarter: 2019Q4

REPORT INFORMATION
  Report Type: Report from Study
  Country: PL (occurrence: PL)
  Receive Date: 20191209
  Receipt Date: 20191209
  Transmission Date: 20200122
  Serious: Yes (Life-Threatening, Hospitalization, Other)
  Sender: FDA-Public Use
  Company Number: NVSC2019PL015446

PATIENT
  Age: 74 Year
  Sex: Male
  Weight: 77 kg

DRUGS (2)
  1. TASIGNA [Suspect]
     Active Substance: NILOTINIB
     Indication: CHRONIC MYELOID LEUKAEMIA
     Dosage: 2 DF, BID
     Route: 048
     Dates: start: 20160914
  2. TASIGNA [Suspect]
     Active Substance: NILOTINIB
     Dosage: 2 DF, QD
     Route: 048

REACTIONS (28)
  - Feeling abnormal [Recovering/Resolving]
  - Hypotension [Recovering/Resolving]
  - Aspartate aminotransferase increased [Unknown]
  - Tricuspid valve incompetence [Unknown]
  - Dizziness [Recovering/Resolving]
  - Troponin T increased [Unknown]
  - Mitral valve incompetence [Unknown]
  - Hypokalaemia [Recovering/Resolving]
  - Left ventricular dysfunction [Recovering/Resolving]
  - Atrial enlargement [Unknown]
  - Dyspnoea exertional [Recovering/Resolving]
  - Abdominal pain [Unknown]
  - Aortic valve incompetence [Unknown]
  - Diverticulum [Unknown]
  - Tachycardia [Unknown]
  - Alanine aminotransferase increased [Unknown]
  - Hypokinesia [Unknown]
  - Asthenia [Recovering/Resolving]
  - C-reactive protein increased [Unknown]
  - Pericardial effusion [Recovering/Resolving]
  - Palpitations [Unknown]
  - Anaemia [Recovering/Resolving]
  - Polyp [Unknown]
  - Anxiety [Recovering/Resolving]
  - Hyperuricaemia [Recovering/Resolving]
  - Atrial fibrillation [Unknown]
  - Pulmonary haemorrhage [Recovering/Resolving]
  - Gastritis [Unknown]

NARRATIVE: CASE EVENT DATE: 20190929
